FAERS Safety Report 22618703 (Version 1)
Quarter: 2023Q2

REPORT INFORMATION
  Report Type: Spontaneous
  Country: FR (occurrence: FR)
  Receive Date: 20230620
  Receipt Date: 20230620
  Transmission Date: 20230721
  Serious: Yes (Other)
  Sender: FDA-Public Use
  Company Number: FR-ALK-ABELLO A/S-2023AA002446

PATIENT

DRUGS (1)
  1. GRAZAX [Suspect]
     Active Substance: PHLEUM PRATENSE POLLEN
     Indication: Immune tolerance induction
     Route: 060

REACTIONS (2)
  - Angioedema [Unknown]
  - Dysphonia [Unknown]

NARRATIVE: CASE EVENT DATE: 20221201
